FAERS Safety Report 13580873 (Version 1)
Quarter: 2017Q2

REPORT INFORMATION
  Report Type: Spontaneous
  Country: IL (occurrence: IL)
  Receive Date: 20170525
  Receipt Date: 20170525
  Transmission Date: 20170830
  Serious: Yes (Other)
  Sender: FDA-Public Use
  Company Number: IL-UNICHEM LABORATORIES LIMITED-UCM201705-000142

PATIENT
  Age: 42 Year
  Sex: Male

DRUGS (8)
  1. DIVALPROEX SODIUM. [Suspect]
     Active Substance: DIVALPROEX SODIUM
  2. LAMOTRIGINE. [Suspect]
     Active Substance: LAMOTRIGINE
  3. CLONAZEPAM. [Suspect]
     Active Substance: CLONAZEPAM
  4. VIGABATRIN. [Concomitant]
     Active Substance: VIGABATRIN
  5. LEVETIRACETAM. [Concomitant]
     Active Substance: LEVETIRACETAM
  6. PRIMIDONE. [Concomitant]
     Active Substance: PRIMIDONE
  7. PHENYTOIN. [Suspect]
     Active Substance: PHENYTOIN
  8. CARBAMAZEPINE. [Suspect]
     Active Substance: CARBAMAZEPINE

REACTIONS (11)
  - Asterixis [Recovered/Resolved]
  - Feeling abnormal [Recovered/Resolved]
  - Abnormal behaviour [Recovered/Resolved]
  - Hyperammonaemia [Unknown]
  - Thinking abnormal [Recovered/Resolved]
  - Gait disturbance [Recovered/Resolved]
  - Drug ineffective [Unknown]
  - Fall [Recovered/Resolved]
  - Aggression [Recovered/Resolved]
  - Drug interaction [Unknown]
  - Encephalopathy [Unknown]
